FAERS Safety Report 13860760 (Version 1)
Quarter: 2017Q3

REPORT INFORMATION
  Report Type: Spontaneous
  Country: US (occurrence: US)
  Receive Date: 20170811
  Receipt Date: 20170811
  Transmission Date: 20171127
  Serious: Yes (Hospitalization)
  Sender: FDA-Public Use
  Company Number: None

PATIENT
  Age: 77 Year
  Sex: Female

DRUGS (1)
  1. LETAIRIS [Suspect]
     Active Substance: AMBRISENTAN
     Indication: PORTAL HYPERTENSION
     Route: 048
     Dates: start: 20160607

REACTIONS (6)
  - Peripheral swelling [None]
  - Hypoxia [None]
  - Presyncope [None]
  - Cardiac failure congestive [None]
  - Dyspnoea [None]
  - Fluid overload [None]

NARRATIVE: CASE EVENT DATE: 20170804
